FAERS Safety Report 20559437 (Version 2)
Quarter: 2022Q4

REPORT INFORMATION
  Report Type: Spontaneous
  Country: CA (occurrence: CA)
  Receive Date: 20220307
  Receipt Date: 20221201
  Transmission Date: 20230113
  Serious: Yes (Other)
  Sender: FDA-Public Use
  Company Number: CA-PFIZER INC-202200321995

PATIENT
  Age: 60 Year
  Sex: Male

DRUGS (5)
  1. SULFASALAZINE [Suspect]
     Active Substance: SULFASALAZINE
     Indication: Arthralgia
     Dosage: 1 G, 2X/DAY
     Dates: start: 2016
  2. SULFASALAZINE [Suspect]
     Active Substance: SULFASALAZINE
     Indication: Pain in extremity
     Dosage: 1.5 G, 2X/DAY
     Route: 048
     Dates: start: 2016
  3. SULFASALAZINE [Suspect]
     Active Substance: SULFASALAZINE
     Dosage: 3 G, DAILY. (3 PILL 500MG IN THE MORNING AND 3 PILLS IN THE EVENING).
  4. PREDNISONE [Concomitant]
     Active Substance: PREDNISONE
     Dosage: 15 MG, DAILY, FOR 2 WEEKS, THEN 12.5MG FOR 2 WEEKS, THEN 10MG
  5. PREDNISONE [Concomitant]
     Active Substance: PREDNISONE
     Dosage: 1 DF. DOSAGE INFO: UNKNOWN. TAPERING NOW

REACTIONS (8)
  - C-reactive protein increased [Unknown]
  - Lymphoma [Unknown]
  - Arthralgia [Unknown]
  - Pain in extremity [Unknown]
  - Tendonitis [Unknown]
  - Synovitis [Unknown]
  - Joint swelling [Unknown]
  - Abdominal pain upper [Unknown]

NARRATIVE: CASE EVENT DATE: 20210101
